FAERS Safety Report 5099696-3 (Version None)
Quarter: 2006Q3

REPORT INFORMATION
  Report Type: 
  Country: None (occurrence: None)
  Receive Date: 20060908
  Receipt Date: 20060825
  Transmission Date: 20061208
  Serious: Yes (Hospitalization)
  Sender: FDA-Public Use
  Company Number: US-ROCHE-461149

PATIENT
  Age: 84 Year
  Sex: Female
  Weight: 59 kg

DRUGS (21)
  1. BONIVA [Suspect]
     Indication: OSTEOPOROSIS
     Dosage: ADMINISTERED Q 3 MONTHS.
     Route: 040
     Dates: start: 20060729, end: 20060729
  2. PHAZYME [Concomitant]
  3. KLONOPIN [Concomitant]
  4. FUROSEMIDE [Concomitant]
  5. SYNTHROID [Concomitant]
  6. SINGULAIR [Concomitant]
  7. ALDACTONE [Concomitant]
  8. ZYRTEC [Concomitant]
  9. AZMACORT [Concomitant]
  10. VICODIN [Concomitant]
  11. ALBUTEROL [Concomitant]
  12. CENTRUM SILVER [Concomitant]
  13. GLUCOSAMINE [Concomitant]
  14. SELENIUM SULFIDE [Concomitant]
  15. VITAMIN B6 [Concomitant]
  16. ARTIFICIAL TEARS [Concomitant]
  17. MYLANTA PLUS [Concomitant]
  18. COLACE [Concomitant]
     Dosage: REPORTED AS DDS COLACE.
  19. UNSPECIFIED MEDICATION [Concomitant]
     Dosage: REPORTED AS FIBER POWDER.
  20. ASPIRIN [Concomitant]
  21. B-PLEX [Concomitant]

REACTIONS (4)
  - BURNING SENSATION [None]
  - CARDIOMEGALY [None]
  - PHLEBITIS [None]
  - PNEUMONIA [None]
